FAERS Safety Report 16870894 (Version 6)
Quarter: 2019Q4

REPORT INFORMATION
  Report Type: Report from Study
  Country: US (occurrence: US)
  Receive Date: 20190930
  Receipt Date: 20191227
  Transmission Date: 20200122
  Serious: Yes (Other)
  Sender: FDA-Public Use
  Company Number: US-CLOVIS ONCOLOGY-CLO-2019-001411

PATIENT
  Age: 77 Year
  Sex: Female

DRUGS (8)
  1. RUBRACA [Suspect]
     Active Substance: RUCAPARIB CAMSYLATE
     Dosage: 400 MG, BID
     Route: 048
     Dates: start: 201910
  2. RUBRACA [Suspect]
     Active Substance: RUCAPARIB CAMSYLATE
     Indication: OVARIAN CANCER
     Dosage: 1000 MG, QD
     Route: 048
     Dates: start: 201905
  3. RUBRACA [Suspect]
     Active Substance: RUCAPARIB CAMSYLATE
     Indication: OVARIAN CANCER
     Dosage: 600 MG, BID
     Route: 048
     Dates: start: 20190626
  4. RUBRACA [Suspect]
     Active Substance: RUCAPARIB CAMSYLATE
     Dosage: UNK
     Dates: start: 20190625, end: 20190916
  5. RUBRACA [Suspect]
     Active Substance: RUCAPARIB CAMSYLATE
     Dosage: 400 MG, QD
     Dates: start: 20190923
  6. RUBRACA [Suspect]
     Active Substance: RUCAPARIB CAMSYLATE
     Indication: ILL-DEFINED DISORDER
     Dosage: UNK
     Dates: start: 20190625
  7. RUBRACA [Suspect]
     Active Substance: RUCAPARIB CAMSYLATE
     Dosage: 500 MG, BID
     Route: 048
     Dates: start: 20190901, end: 20190916
  8. RUBRACA [Suspect]
     Active Substance: RUCAPARIB CAMSYLATE
     Dosage: 400 MG, BID
     Route: 048
     Dates: start: 201910

REACTIONS (22)
  - Chills [Unknown]
  - Eye pain [Unknown]
  - Blood count abnormal [Recovering/Resolving]
  - Tumour marker increased [Unknown]
  - Groin pain [Recovering/Resolving]
  - Weight decreased [Recovering/Resolving]
  - Insomnia [Unknown]
  - Fatigue [Unknown]
  - Asthenia [Unknown]
  - Bone marrow failure [Recovered/Resolved]
  - Dysgeusia [Unknown]
  - Oral pain [Recovered/Resolved]
  - Decreased appetite [Recovered/Resolved]
  - Onychomadesis [Recovering/Resolving]
  - Apathy [Unknown]
  - Pruritus [Unknown]
  - Rash [Unknown]
  - White blood cell count decreased [Unknown]
  - Myalgia [Unknown]
  - Dry eye [Unknown]
  - Paraesthesia [Unknown]
  - Blood pressure increased [Recovering/Resolving]

NARRATIVE: CASE EVENT DATE: 2019
